FAERS Safety Report 6818009-7 (Version None)
Quarter: 2010Q3

REPORT INFORMATION
  Report Type: 
  Country: None (occurrence: None)
  Receive Date: 20100706
  Receipt Date: 20100628
  Transmission Date: 20110219
  Serious: Yes (Other)
  Sender: FDA-Public Use
  Company Number: NL-AMGEN-KDL420222

PATIENT
  Sex: Male
  Weight: 111 kg

DRUGS (6)
  1. CINACALCET HYDROCHLORIDE [Suspect]
     Indication: PRE-EXISTING DISEASE
  2. LITHIUM CARBONATE [Concomitant]
     Route: 048
  3. AMLODIPINE [Concomitant]
     Route: 048
  4. FOSINOPRIL SODIUM [Concomitant]
     Route: 048
  5. ACENOCOUMAROL [Concomitant]
     Route: 048
  6. SERTRALINE [Concomitant]

REACTIONS (2)
  - DEPRESSION [None]
  - MENTAL DISORDER [None]
